FAERS Safety Report 7650036-2 (Version None)
Quarter: 2011Q3

REPORT INFORMATION
  Report Type: 
  Country: None (occurrence: None)
  Receive Date: 20110802
  Receipt Date: 20110802
  Transmission Date: 20111222
  Serious: No
  Sender: FDA-Public Use
  Company Number: None

PATIENT
  Age: 66 Year
  Sex: Female
  Weight: 69.853 kg

DRUGS (1)
  1. DILTIAZEM [Suspect]
     Indication: SUPRAVENTRICULAR TACHYCARDIA
     Dosage: 120MG
     Route: 048
     Dates: start: 20110719, end: 20110725

REACTIONS (5)
  - HYPOTENSION [None]
  - BALANCE DISORDER [None]
  - PALPITATIONS [None]
  - VENTRICULAR EXTRASYSTOLES [None]
  - DIZZINESS [None]
